FAERS Safety Report 6922203-4 (Version None)
Quarter: 2010Q3

REPORT INFORMATION
  Report Type: 
  Country: None (occurrence: None)
  Receive Date: 20100813
  Receipt Date: 20100805
  Transmission Date: 20110219
  Serious: Yes (Hospitalization, Other)
  Sender: FDA-Public Use
  Company Number: DE-ABBOTT-10P-062-0659570-00

PATIENT
  Sex: Male
  Weight: 67 kg

DRUGS (5)
  1. KALETRA [Suspect]
     Indication: HIV INFECTION
     Route: 048
     Dates: start: 20100401
  2. TRUVADA [Concomitant]
     Indication: HIV INFECTION
     Dosage: 200/245, ONCE PER DAY
  3. IMODIUM [Concomitant]
     Indication: DIARRHOEA
     Dates: start: 20100615
  4. VOLTAREN [Concomitant]
     Indication: PRODUCT USED FOR UNKNOWN INDICATION
     Dates: start: 20100712
  5. PANTOPRAZOLE [Concomitant]
     Indication: PRODUCT USED FOR UNKNOWN INDICATION
     Dates: start: 20100712

REACTIONS (4)
  - ANAL CANCER [None]
  - DERMATITIS [None]
  - PANCYTOPENIA [None]
  - PAPILLOMA VIRAL INFECTION [None]
